FAERS Safety Report 8846299 (Version 2)
Quarter: 2013Q1

REPORT INFORMATION
  Report Type: Spontaneous
  Country: US (occurrence: US)
  Receive Date: 20121018
  Receipt Date: 20130109
  Transmission Date: 20140127
  Serious: Yes (Death, Hospitalization)
  Sender: FDA-Public Use
  Company Number: US-BIOGENIDEC-2012BI043614

PATIENT
  Age: 46 Year
  Sex: Male

DRUGS (4)
  1. TYSABRI [Suspect]
     Indication: MULTIPLE SCLEROSIS
     Route: 042
     Dates: start: 20110304, end: 20120727
  2. BACLOFEN [Concomitant]
  3. AMPYRA [Concomitant]
  4. GABAPENTIN [Concomitant]

REACTIONS (3)
  - Progressive multifocal leukoencephalopathy [Fatal]
  - Klebsiella infection [Unknown]
  - Immune reconstitution inflammatory syndrome [Unknown]
